FAERS Safety Report 25871049 (Version 1)
Quarter: 2025Q4

REPORT INFORMATION
  Report Type: Spontaneous
  Country: US (occurrence: US)
  Receive Date: 20251001
  Receipt Date: 20251001
  Transmission Date: 20260118
  Serious: Yes (Life-Threatening, Other)
  Sender: B. BRAUN MEDICAL INC.
  Company Number: None

PATIENT
  Age: 68 Year
  Sex: Female

DRUGS (1)
  1. HEPARIN [Suspect]
     Active Substance: HEPARIN SODIUM
     Indication: Dialysis

REACTIONS (3)
  - Respiratory distress [Recovered/Resolved]
  - Tracheal stenosis [Recovered/Resolved]
  - Pharyngeal haematoma [Recovered/Resolved]
